FAERS Safety Report 4675162-1 (Version None)
Quarter: 2005Q2

REPORT INFORMATION
  Report Type: 
  Country: None (occurrence: None)
  Receive Date: 20050526
  Receipt Date: 20050516
  Transmission Date: 20051028
  Serious: Yes (Other)
  Sender: FDA-Public Use
  Company Number: 2005044273

PATIENT
  Sex: Male

DRUGS (7)
  1. DILANTIN KAPSEAL [Suspect]
     Indication: CONVULSION
     Dosage: 400 MG (400 MG, 1 IN 1 D),
  2. MORPHINE [Suspect]
     Indication: ILL-DEFINED DISORDER
  3. ALCOHOL (ALCOHOL) [Suspect]
     Indication: ILL-DEFINED DISORDER
     Dosage: ORAL
     Route: 048
  4. FIORINAL [Concomitant]
  5. DEMEROL [Concomitant]
  6. TRAMADOL HCL [Concomitant]
  7. RITALIN [Concomitant]

REACTIONS (7)
  - ALCOHOL USE [None]
  - ALCOHOL WITHDRAWAL SYNDROME [None]
  - CONVULSION [None]
  - DRUG EFFECT DECREASED [None]
  - DRUG LEVEL BELOW THERAPEUTIC [None]
  - JOINT DISLOCATION [None]
  - WEIGHT DECREASED [None]
